FAERS Safety Report 5162425-9 (Version None)
Quarter: 2006Q4

REPORT INFORMATION
  Report Type: 
  Country: None (occurrence: None)
  Receive Date: 20061128
  Receipt Date: 20061128
  Transmission Date: 20070319
  Serious: Yes (Other)
  Sender: FDA-Public Use
  Company Number: None

PATIENT
  Age: 82 Year
  Sex: Male
  Weight: 101.3789 kg

DRUGS (5)
  1. SIMVASTATIN [Suspect]
     Dosage: 40MG PO HS
     Route: 048
     Dates: start: 20031119, end: 20060501
  2. THALIDOMIDE [Suspect]
     Indication: MULTIPLE MYELOMA
  3. EPOETIN [Concomitant]
  4. HYDROCHLOROTHIAZIDE [Concomitant]
  5. OMEPRAZOLE [Concomitant]

REACTIONS (1)
  - DRUG ERUPTION [None]
